FAERS Safety Report 15524039 (Version 1)
Quarter: 2018Q4

REPORT INFORMATION
  Report Type: Spontaneous
  Country: US (occurrence: US)
  Receive Date: 20181018
  Receipt Date: 20181018
  Transmission Date: 20190205
  Serious: No
  Sender: FDA-Public Use
  Company Number: US-009507513-1810USA004824

PATIENT
  Age: 79 Year
  Sex: Female

DRUGS (3)
  1. CALCITONIN [Concomitant]
     Active Substance: CALCITONIN
     Indication: HYPERPARATHYROIDISM PRIMARY
  2. FOSAMAX [Suspect]
     Active Substance: ALENDRONATE SODIUM
     Indication: HYPERPARATHYROIDISM PRIMARY
     Route: 048
  3. SENSIPAR [Concomitant]
     Active Substance: CINACALCET HYDROCHLORIDE
     Indication: HYPERPARATHYROIDISM PRIMARY

REACTIONS (1)
  - Product use in unapproved indication [Unknown]
